FAERS Safety Report 7192546-0 (Version None)
Quarter: 2010Q4

REPORT INFORMATION
  Report Type: 
  Country: None (occurrence: None)
  Receive Date: 20101223
  Receipt Date: 20101201
  Transmission Date: 20110411
  Serious: Yes (Hospitalization)
  Sender: FDA-Public Use
  Company Number: JP-BAYER-201015544BYL

PATIENT
  Age: 84 Year
  Sex: Male

DRUGS (1)
  1. ASPIRIN [Suspect]
     Indication: CEREBRAL INFARCTION
     Dosage: SINCE 56 AGE
     Route: 048

REACTIONS (2)
  - COLONIC HAEMATOMA [None]
  - LARGE INTESTINE PERFORATION [None]
